FAERS Safety Report 7583744-2 (Version None)
Quarter: 2011Q2

REPORT INFORMATION
  Report Type: 
  Country: None (occurrence: None)
  Receive Date: 20110630
  Receipt Date: 20110616
  Transmission Date: 20111010
  Serious: No
  Sender: FDA-Public Use
  Company Number: AT-AMGEN-AUTSP2011022894

PATIENT
  Sex: Male
  Weight: 3.09 kg

DRUGS (3)
  1. ENBREL [Suspect]
     Indication: PSORIATIC ARTHROPATHY
     Dosage: 50 MG, WEEKLY
     Route: 064
     Dates: start: 20080101, end: 20100709
  2. FOLSAN [Concomitant]
     Indication: PSORIATIC ARTHROPATHY
     Dosage: UNK
     Route: 064
     Dates: start: 20080101, end: 20110101
  3. EBETREXAT                          /00113801/ [Concomitant]
     Indication: PSORIATIC ARTHROPATHY
     Dosage: UNK
     Route: 064
     Dates: start: 20080101, end: 20090101

REACTIONS (1)
  - DRUG EXPOSURE DURING PREGNANCY [None]
